FAERS Safety Report 4578819-6 (Version None)
Quarter: 2005Q1

REPORT INFORMATION
  Report Type: 
  Country: None (occurrence: None)
  Receive Date: 20050209
  Receipt Date: 20050209
  Transmission Date: 20050727
  Serious: Yes (Hospitalization)
  Sender: FDA-Public Use
  Company Number: None

PATIENT
  Age: 63 Year
  Sex: Female
  Weight: 117.5 kg

DRUGS (12)
  1. BEXTRA [Suspect]
     Indication: ARTHRALGIA
     Dosage: DAILY
  2. ALEVE [Suspect]
     Indication: PAIN
     Dosage: 3 TABS @ A TIME /ONCE A WK
  3. NARDIL [Concomitant]
  4. GABAPENTIN [Concomitant]
  5. VIT B12 [Concomitant]
  6. HYDROCHLOROTHIAZIDE [Concomitant]
  7. PROVENTIL [Concomitant]
  8. DIOVAN [Concomitant]
  9. GLUCOVANCE [Concomitant]
  10. ADVAIR DISKUS 100/50 [Concomitant]
  11. NORVASC [Concomitant]
  12. NEXIUM [Concomitant]

REACTIONS (4)
  - ANAEMIA [None]
  - ASTHMA [None]
  - FATIGUE [None]
  - GASTRIC ULCER HAEMORRHAGE [None]
